FAERS Safety Report 9629356 (Version 2)
Quarter: 2013Q4

REPORT INFORMATION
  Report Type: Spontaneous
  Country: CA (occurrence: CA)
  Receive Date: 20131017
  Receipt Date: 20131017
  Transmission Date: 20140711
  Serious: Yes (Hospitalization)
  Sender: FDA-Public Use
  Company Number: CA-CUBIST PHARMACEUTICALS, INC.-2013CBST000933

PATIENT
  Sex: 0

DRUGS (4)
  1. CUBICIN [Suspect]
     Indication: STAPHYLOCOCCAL OSTEOMYELITIS
     Dosage: 6 MG/KG, Q24H
     Route: 042
     Dates: start: 20130903, end: 20130905
  2. CUBICIN [Suspect]
     Indication: OFF LABEL USE
     Dosage: 680 MG, Q24H
     Route: 042
     Dates: start: 20130903, end: 20130905
  3. HUMULIN R [Concomitant]
     Indication: DIABETES MELLITUS
     Dosage: UNK, UNK, UNK
     Route: 065
  4. PIPERACILLIN/TAZOBACTAM [Concomitant]
     Indication: OSTEOMYELITIS
     Dosage: 4.5 G, Q8H
     Route: 042
     Dates: start: 20130823, end: 20130906

REACTIONS (7)
  - Night sweats [Recovered/Resolved]
  - Pyrexia [Recovered/Resolved]
  - Renal failure [Not Recovered/Not Resolved]
  - Malaise [Recovered/Resolved]
  - Blood creatinine increased [Not Recovered/Not Resolved]
  - Rash maculo-papular [Recovered/Resolved]
  - Nausea [Recovered/Resolved]
